FAERS Safety Report 11634578 (Version 1)
Quarter: 2015Q4

REPORT INFORMATION
  Report Type: Spontaneous
  Country: US (occurrence: None)
  Receive Date: 20151015
  Receipt Date: 20151015
  Transmission Date: 20160304
  Serious: Yes (Other)
  Sender: FDA-Public Use
  Company Number: US-MDT-ADR-2015-01968

PATIENT
  Age: 10 Year
  Sex: Male

DRUGS (1)
  1. BACLOFEN INTRATHECAL 2000 MCG/ML [Suspect]
     Active Substance: BACLOFEN
     Indication: MUSCLE SPASTICITY
     Dosage: 150 MCG/DAY

REACTIONS (3)
  - Muscle spasticity [None]
  - Agitation [None]
  - Device kink [None]
